FAERS Safety Report 6641990-6 (Version None)
Quarter: 2010Q1

REPORT INFORMATION
  Report Type: 
  Country: None (occurrence: None)
  Receive Date: 20100319
  Receipt Date: 20100313
  Transmission Date: 20100710
  Serious: Yes (Death)
  Sender: FDA-Public Use
  Company Number: US-SANOFI-AVENTIS-2010SA015196

PATIENT
  Age: 49 Year
  Sex: Male

DRUGS (3)
  1. PLAVIX [Suspect]
     Route: 048
     Dates: start: 20090801, end: 20090901
  2. FISH OIL [Concomitant]
     Dates: end: 20090901
  3. COENZYME Q10 [Concomitant]
     Dates: end: 20090901

REACTIONS (1)
  - DEATH [None]
